FAERS Safety Report 13788762 (Version 3)
Quarter: 2018Q1

REPORT INFORMATION
  Report Type: Spontaneous
  Country: US (occurrence: US)
  Receive Date: 20170725
  Receipt Date: 20180208
  Transmission Date: 20180508
  Serious: No
  Sender: FDA-Public Use
  Company Number: US-JNJFOC-20170711229

PATIENT
  Age: 65 Year
  Sex: Male
  Weight: 102 kg

DRUGS (19)
  1. IMBRUVICA [Suspect]
     Active Substance: IBRUTINIB
     Indication: CHRONIC LYMPHOCYTIC LEUKAEMIA
     Route: 048
     Dates: start: 20170117, end: 201702
  2. IMBRUVICA [Suspect]
     Active Substance: IBRUTINIB
     Indication: CHRONIC LYMPHOCYTIC LEUKAEMIA
     Route: 048
     Dates: start: 20170110
  3. ATORVASTATIN [Concomitant]
     Active Substance: ATORVASTATIN
     Route: 048
     Dates: start: 20160907
  4. STOOL SOFTENER (DOCUSATE) [Concomitant]
     Active Substance: DOCUSATE
     Dates: start: 20141111
  5. AFLURIA [Concomitant]
     Active Substance: INFLUENZA VIRUS VACCINE TRIVALENT TYPE A+B AFLURIA
     Dosage: 0.5 ML, QUADRIVALENT , V6.0
     Dates: start: 20170913, end: 20170913
  6. IMBRUVICA [Suspect]
     Active Substance: IBRUTINIB
     Indication: CHRONIC LYMPHOCYTIC LEUKAEMIA
     Dosage: TWO CAPSULE DAILY FOR 14 DAYS FOLLOWED BY ONE DAILY FOR SEVEN DAYS
     Route: 048
     Dates: start: 201710, end: 2017
  7. IMBRUVICA [Suspect]
     Active Substance: IBRUTINIB
     Indication: CHRONIC LYMPHOCYTIC LEUKAEMIA
     Route: 048
     Dates: start: 201703
  8. FLUOCINONIDE. [Concomitant]
     Active Substance: FLUOCINONIDE
  9. METFORMIN [Concomitant]
     Active Substance: METFORMIN HYDROCHLORIDE
     Dosage: 750 MG, QD, EXTENDED RELEASE 24 HR
     Route: 048
     Dates: start: 20171213
  10. METOPROLOL SUCCINATE. [Concomitant]
     Active Substance: METOPROLOL SUCCINATE
     Dates: start: 20110420
  11. METOPROLOL SUCCINATE. [Concomitant]
     Active Substance: METOPROLOL SUCCINATE
  12. IMBRUVICA [Suspect]
     Active Substance: IBRUTINIB
     Indication: CHRONIC LYMPHOCYTIC LEUKAEMIA
     Dosage: TWO CAPSULE DAILY FOR 14 DAYS FOLLOWED BY ONE DAILY FOR SEVEN DAYS
     Route: 048
     Dates: start: 20170926, end: 201710
  13. IMBRUVICA [Suspect]
     Active Substance: IBRUTINIB
     Indication: CHRONIC LYMPHOCYTIC LEUKAEMIA
     Route: 048
     Dates: start: 20170120, end: 201706
  14. FLONASE [Concomitant]
     Active Substance: FLUTICASONE PROPIONATE
  15. AMOXICILLIN. [Concomitant]
     Active Substance: AMOXICILLIN
     Dosage: 500 MG, 4 QTY, TAKE FOUR CAPSULE PRIOR TO DENTAL PROCEDURE
     Dates: start: 20170302
  16. DIOVAN [Concomitant]
     Active Substance: VALSARTAN
     Route: 048
     Dates: start: 20161220
  17. IMMUNOGLOBULIN HUMAN NORMAL [Concomitant]
     Active Substance: HUMAN IMMUNOGLOBULIN G
     Dosage: 2301.37012 MG/KG
     Dates: start: 20170510
  18. ELIQUIS [Concomitant]
     Active Substance: APIXABAN
     Dosage: 250 MG, BID,180 QTY
     Route: 048
     Dates: start: 20171213
  19. FLONASE [Concomitant]
     Active Substance: FLUTICASONE PROPIONATE
     Dates: start: 20170628

REACTIONS (4)
  - Neutropenia [Unknown]
  - Incorrect dose administered [Unknown]
  - Inappropriate schedule of drug administration [Unknown]
  - Off label use [Unknown]

NARRATIVE: CASE EVENT DATE: 2017
